FAERS Safety Report 4416018-9 (Version None)
Quarter: 2004Q3

REPORT INFORMATION
  Report Type: 
  Country: None (occurrence: None)
  Receive Date: 20040802
  Receipt Date: 20040728
  Transmission Date: 20050211
  Serious: Yes (Hospitalization)
  Sender: FDA-Public Use
  Company Number: 2004-07-1667

PATIENT
  Sex: Female

DRUGS (5)
  1. AERIUS (DESLORATADINE) TABLETS ^LIKE CLARINEX^ [Suspect]
     Dosage: SEE IMAGE
  2. ZYRTEC [Concomitant]
  3. FUROSEMIDE [Concomitant]
  4. KALEORID [Concomitant]
  5. CIPRAMIL [Concomitant]

REACTIONS (4)
  - BLISTER [None]
  - HIP FRACTURE [None]
  - PAIN [None]
  - SECRETION DISCHARGE [None]
